APPROVED DRUG PRODUCT: LEDERCILLIN VK
Active Ingredient: PENICILLIN V POTASSIUM
Strength: EQ 250MG BASE/5ML
Dosage Form/Route: FOR SOLUTION;ORAL
Application: A060136 | Product #002
Applicant: LEDERLE LABORATORIES DIV AMERICAN CYANAMID CO
Approved: Approved Prior to Jan 1, 1982 | RLD: No | RS: No | Type: DISCN